FAERS Safety Report 9921592 (Version 2)
Quarter: 2014Q2

REPORT INFORMATION
  Report Type: Spontaneous
  Country: US (occurrence: US)
  Receive Date: 20140225
  Receipt Date: 20140408
  Transmission Date: 20141212
  Serious: No
  Sender: FDA-Public Use
  Company Number: US-BAYER-2014-029102

PATIENT
  Age: 18 Year
  Sex: Female
  Weight: 61.22 kg

DRUGS (1)
  1. MIRENA [Suspect]
     Indication: CONTRACEPTION
     Dosage: 20 ?G/D, CONT
     Route: 015
     Dates: start: 20121024, end: 20130604

REACTIONS (4)
  - Abdominal pain [Not Recovered/Not Resolved]
  - Dyspareunia [Not Recovered/Not Resolved]
  - Amenorrhoea [None]
  - Abdominal pain lower [None]
